FAERS Safety Report 5979581-2 (Version None)
Quarter: 2008Q4

REPORT INFORMATION
  Report Type: 
  Country: None (occurrence: None)
  Receive Date: 20081204
  Receipt Date: 20081126
  Transmission Date: 20090506
  Serious: Yes (Hospitalization, Other)
  Sender: FDA-Public Use
  Company Number: US-AMGEN-QUU319456

PATIENT
  Sex: Female

DRUGS (2)
  1. ENBREL [Suspect]
     Indication: RHEUMATOID ARTHRITIS
     Route: 058
     Dates: start: 20010607
  2. SULFASALAZINE [Concomitant]
     Route: 048

REACTIONS (5)
  - DIABETES MELLITUS [None]
  - LEG AMPUTATION [None]
  - LYMPHOCYTE MORPHOLOGY ABNORMAL [None]
  - NEUTROPENIA [None]
  - POOR PERIPHERAL CIRCULATION [None]
